FAERS Safety Report 4829531-7 (Version None)
Quarter: 2005Q4

REPORT INFORMATION
  Report Type: 
  Country: None (occurrence: None)
  Receive Date: 20051116
  Receipt Date: 20051109
  Transmission Date: 20060501
  Serious: Yes (Hospitalization)
  Sender: FDA-Public Use
  Company Number: DE-SANOFI-SYNTHELABO-A04200500965

PATIENT
  Sex: Male
  Weight: 72.3 kg

DRUGS (12)
  1. ELOXATIN [Suspect]
     Indication: RECTAL CANCER METASTATIC
     Route: 041
     Dates: start: 20050915, end: 20050915
  2. ELOXATIN [Suspect]
     Indication: PROSTATE CANCER
     Route: 041
     Dates: start: 20050915, end: 20050915
  3. ELOXATIN [Suspect]
     Indication: TRANSITIONAL CELL CARCINOMA
     Route: 041
     Dates: start: 20050915, end: 20050915
  4. AVASTIN [Concomitant]
     Indication: RECTAL CANCER METASTATIC
     Route: 041
     Dates: start: 20050915, end: 20050915
  5. AVASTIN [Concomitant]
     Indication: PROSTATE CANCER
     Route: 041
     Dates: start: 20050915, end: 20050915
  6. AVASTIN [Concomitant]
     Indication: TRANSITIONAL CELL CARCINOMA
     Route: 041
     Dates: start: 20050915, end: 20050915
  7. RIBOFOLIN [Concomitant]
     Indication: RECTAL CANCER METASTATIC
     Route: 041
     Dates: start: 20050915, end: 20050915
  8. RIBOFOLIN [Concomitant]
     Indication: PROSTATE CANCER
     Route: 041
     Dates: start: 20050915, end: 20050915
  9. RIBOFOLIN [Concomitant]
     Indication: TRANSITIONAL CELL CARCINOMA
     Route: 041
     Dates: start: 20050915, end: 20050915
  10. RIBOFLUOR [Concomitant]
     Indication: RECTAL CANCER METASTATIC
     Route: 041
     Dates: start: 20050915, end: 20050915
  11. RIBOFLUOR [Concomitant]
     Indication: PROSTATE CANCER
     Route: 041
     Dates: start: 20050915, end: 20050915
  12. RIBOFLUOR [Concomitant]
     Indication: TRANSITIONAL CELL CARCINOMA
     Route: 041
     Dates: start: 20050915, end: 20050915

REACTIONS (5)
  - BLOOD PRESSURE INCREASED [None]
  - BODY TEMPERATURE INCREASED [None]
  - NAUSEA [None]
  - RENAL PAIN [None]
  - VOMITING [None]
